FAERS Safety Report 8429704-0 (Version None)
Quarter: 2012Q2

REPORT INFORMATION
  Report Type: 
  Country: None (occurrence: None)
  Receive Date: 20120521
  Receipt Date: 20120515
  Transmission Date: 20120825
  Serious: Yes (Life-Threatening, Hospitalization)
  Sender: FDA-Public Use
  Company Number: 2012032053

PATIENT
  Weight: 53.5244 kg

DRUGS (12)
  1. NIFEDIPINE ER (NIFEDINPINE) [Concomitant]
  2. SIMVASTATIN [Concomitant]
  3. MULTI-VITAMINS [Concomitant]
  4. HIZENTRA [Suspect]
     Indication: IMMUNODEFICIENCY COMMON VARIABLE
     Dosage: 11 G 1X/WEEK, 55 ML IN 4 SITES OVER 1-2 HOURS SUBCUTANEOUS)
     Route: 058
     Dates: start: 20111220
  5. BYSTOLIC [Concomitant]
  6. PREVACID [Concomitant]
  7. DIGOXIN [Concomitant]
  8. LMX (LIDOCAINE HYDROCHLORIDE) [Concomitant]
  9. CALCIUM CARBONATE [Concomitant]
  10. FUROSEMIDE [Concomitant]
  11. ASPIRIN [Concomitant]
  12. MELOXICAM [Concomitant]

REACTIONS (4)
  - BLINDNESS UNILATERAL [None]
  - CEREBROVASCULAR ACCIDENT [None]
  - HYPERTENSION [None]
  - CONDITION AGGRAVATED [None]
